FAERS Safety Report 16035885 (Version 11)
Quarter: 2023Q2

REPORT INFORMATION
  Report Type: Spontaneous
  Country: HU (occurrence: HU)
  Receive Date: 20190305
  Receipt Date: 20230620
  Transmission Date: 20230722
  Serious: Yes (Hospitalization)
  Sender: FDA-Public Use
  Company Number: HU-EGIS-HUN-2019-0039

PATIENT
  Age: 84 Year
  Sex: Female

DRUGS (3)
  1. AMLODIPINE [Suspect]
     Active Substance: AMLODIPINE BESYLATE
     Indication: Systolic hypertension
     Dosage: THE EVENING DOSE WAS REDUCED
     Route: 048
  2. BISOPROLOL FUMARATE [Suspect]
     Active Substance: BISOPROLOL FUMARATE
     Indication: Hypertension
     Dosage: UNK
     Route: 048
  3. CARVEDILOL [Suspect]
     Active Substance: CARVEDILOL
     Indication: Hypertension
     Dosage: 12.5 MILLIGRAM, BID (12.5 MG, 2X/DAY)
     Route: 065

REACTIONS (7)
  - Systolic hypertension [Recovering/Resolving]
  - Peripheral coldness [Recovered/Resolved]
  - Heart rate increased [Unknown]
  - Blood glucose increased [Unknown]
  - Oedema peripheral [Recovered/Resolved]
  - Paraesthesia [Recovered/Resolved]
  - Therapeutic product effect incomplete [Unknown]

NARRATIVE: CASE EVENT DATE: 20180101
